FAERS Safety Report 16912207 (Version 1)
Quarter: 2019Q4

REPORT INFORMATION
  Report Type: Spontaneous
  Country: US (occurrence: US)
  Receive Date: 20191014
  Receipt Date: 20191014
  Transmission Date: 20200122
  Serious: Yes (Other)
  Sender: FDA-Public Use
  Company Number: US-009507513-1910USA007425

PATIENT
  Sex: Female

DRUGS (1)
  1. BRIDION [Suspect]
     Active Substance: SUGAMMADEX
     Indication: NEUROMUSCULAR BLOCKADE REVERSAL
     Dosage: 4 MILLIGRAM/KILOGRAM
     Route: 042

REACTIONS (2)
  - Atrial fibrillation [Recovered/Resolved]
  - Product administration error [Unknown]
